FAERS Safety Report 6964975-9 (Version None)
Quarter: 2010Q3

REPORT INFORMATION
  Report Type: 
  Country: None (occurrence: None)
  Receive Date: 20100903
  Receipt Date: 20100831
  Transmission Date: 20110219
  Serious: Yes (Hospitalization)
  Sender: FDA-Public Use
  Company Number: NO-ASTRAZENECA-2010SE40952

PATIENT
  Age: 35 Year
  Sex: Male

DRUGS (2)
  1. SEROQUEL DEPOT [Suspect]
     Indication: AFFECTIVE DISORDER
     Route: 048
     Dates: end: 20100329
  2. TRAMADOL HCL [Suspect]
     Indication: PAIN
     Route: 048
     Dates: end: 20100329

REACTIONS (2)
  - NEUTROPENIA [None]
  - URINARY RETENTION [None]
